FAERS Safety Report 6431811-9 (Version None)
Quarter: 2009Q4

REPORT INFORMATION
  Report Type: 
  Country: None (occurrence: None)
  Receive Date: 20091104
  Receipt Date: 20091023
  Transmission Date: 20100525
  Serious: Yes (Other)
  Sender: FDA-Public Use
  Company Number: 2009TJ0232

PATIENT
  Age: 55 Year
  Sex: Female

DRUGS (1)
  1. TWINJECT 0.3 [Suspect]
     Indication: ANAPHYLACTIC REACTION
     Dosage: 0.3MG, AS NEEDED

REACTIONS (3)
  - LIQUID PRODUCT PHYSICAL ISSUE [None]
  - MYALGIA [None]
  - PRODUCT COLOUR ISSUE [None]
